FAERS Safety Report 6370763-7 (Version None)
Quarter: 2009Q3

REPORT INFORMATION
  Report Type: 
  Country: None (occurrence: None)
  Receive Date: 20090923
  Receipt Date: 20070606
  Transmission Date: 20100115
  Serious: Yes (Hospitalization)
  Sender: FDA-Public Use
  Company Number: US-ASTRAZENECA-2006UW26541

PATIENT
  Age: 354 Month
  Sex: Male
  Weight: 145.1 kg

DRUGS (12)
  1. SEROQUEL [Suspect]
     Indication: SLEEP DISORDER
     Dosage: 500 MG TO 1000 MG
     Route: 048
     Dates: start: 20020601, end: 20040401
  2. SEROQUEL [Suspect]
     Indication: DEPRESSION
     Dosage: 500 MG TO 1000 MG
     Route: 048
     Dates: start: 20020601, end: 20040401
  3. SEROQUEL [Suspect]
     Indication: ANXIETY
     Dosage: 500 MG TO 1000 MG
     Route: 048
     Dates: start: 20020601, end: 20040401
  4. SEROQUEL [Suspect]
     Route: 048
     Dates: start: 20040101
  5. SEROQUEL [Suspect]
     Route: 048
     Dates: start: 20040101
  6. SEROQUEL [Suspect]
     Route: 048
     Dates: start: 20040101
  7. OXCARBAZEPINE [Concomitant]
     Indication: AFFECTIVE DISORDER
     Dosage: ONE OR TWO DAILY
     Route: 048
     Dates: start: 20040825
  8. TRAZODONE [Concomitant]
     Dosage: 1/3 OR 1 AT NIGHT
     Route: 065
     Dates: start: 20050210
  9. TEGRETOL [Concomitant]
     Indication: CONVULSION
     Dosage: ONE OR TWO DAILY
     Route: 065
     Dates: start: 20040419
  10. VALPROIC ACID [Concomitant]
     Route: 065
     Dates: start: 20050812
  11. DILANTIN [Concomitant]
     Route: 065
     Dates: start: 20040823, end: 20050101
  12. ACETAMINOPHEN AND HYDROCODONE BITARTRATE [Concomitant]
     Route: 065
     Dates: start: 20070219

REACTIONS (3)
  - DIABETES MELLITUS [None]
  - HYPERGLYCAEMIA [None]
  - TYPE 1 DIABETES MELLITUS [None]
